FAERS Safety Report 6369402-0 (Version None)
Quarter: 2009Q3

REPORT INFORMATION
  Report Type: 
  Country: None (occurrence: None)
  Receive Date: 20090917
  Receipt Date: 20090910
  Transmission Date: 20100115
  Serious: Yes (Death)
  Sender: FDA-Public Use
  Company Number: 2009AL000603

PATIENT
  Age: 78 Year
  Sex: Male

DRUGS (25)
  1. DIGOXIN [Suspect]
     Dosage: 0.125MG, UNK, PO
     Route: 048
  2. ACETYLCYSTEINE [Concomitant]
  3. ALPRAZOLAM [Concomitant]
  4. HYDROCODONE BITARTRATE AND ACETAMINOPHEN [Concomitant]
  5. PROAIR HFA [Concomitant]
  6. LEXAPRO [Concomitant]
  7. METOPROLOL SUCCINATE [Concomitant]
  8. PREVACID [Concomitant]
  9. REQUIP [Concomitant]
  10. DUONEB [Concomitant]
  11. MIRTAZAPINE [Concomitant]
  12. FUROSEMIDE [Concomitant]
  13. LEVAQUIN [Concomitant]
  14. LISINOPRIL [Concomitant]
  15. CRESTOR [Concomitant]
  16. MAVIK [Concomitant]
  17. TRANDOLAPRIL [Concomitant]
  18. HYDRALAZINE [Concomitant]
  19. PROPO-N/APAP [Concomitant]
  20. IPRATROP/ALBUTEROL [Concomitant]
  21. ACETYLCYST [Concomitant]
  22. SONATA [Concomitant]
  23. RISPERDAL [Concomitant]
  24. BENZTROPINE MESYLATE [Concomitant]
  25. LUNESTA [Concomitant]

REACTIONS (7)
  - ANXIETY [None]
  - CARDIAC DISORDER [None]
  - FAMILY STRESS [None]
  - FEAR [None]
  - MULTIPLE INJURIES [None]
  - SOCIAL PROBLEM [None]
  - UNEVALUABLE EVENT [None]
